FAERS Safety Report 5510517-4 (Version None)
Quarter: 2007Q4

REPORT INFORMATION
  Report Type: 
  Country: None (occurrence: None)
  Receive Date: 20071030
  Receipt Date: 20070531
  Transmission Date: 20080405
  Serious: Yes (Hospitalization, Other)
  Sender: FDA-Public Use
  Company Number: HQWYE477004JUN07

PATIENT
  Age: 43 Year
  Sex: Female

DRUGS (1)
  1. PREMARIN [Suspect]
     Indication: HORMONE REPLACEMENT THERAPY
     Dosage: 1 TABLET 1X PER 1 DAY ORAL
     Route: 048
     Dates: start: 20040701, end: 20041201

REACTIONS (3)
  - BREAST CANCER [None]
  - HYPERTENSION [None]
  - TYPE 2 DIABETES MELLITUS [None]
